FAERS Safety Report 10222017 (Version 2)
Quarter: 2014Q2

REPORT INFORMATION
  Report Type: Spontaneous
  Country: MX (occurrence: MX)
  Receive Date: 20140606
  Receipt Date: 20140606
  Transmission Date: 20141212
  Serious: No
  Sender: FDA-Public Use
  Company Number: MX-BIOMARINAP-MX-2014-102261

PATIENT
  Sex: 0

DRUGS (1)
  1. NAGLAZYME [Suspect]

REACTIONS (1)
  - Body temperature fluctuation [Unknown]
